FAERS Safety Report 11752997 (Version 1)
Quarter: 2015Q4

REPORT INFORMATION
  Report Type: Spontaneous
  Country: US (occurrence: None)
  Receive Date: 20151117
  Receipt Date: 20151117
  Transmission Date: 20160304
  Serious: Yes (Other)
  Sender: FDA-Public Use
  Company Number: None

PATIENT
  Age: 63 Year
  Sex: Female

DRUGS (1)
  1. GLEEVEC [Suspect]
     Active Substance: IMATINIB MESYLATE
     Indication: GASTRITIS
     Dosage: 100-200 MG
     Route: 048
     Dates: start: 20150318, end: 20151116

REACTIONS (4)
  - Body temperature fluctuation [None]
  - Alopecia [None]
  - Weight decreased [None]
  - Weight increased [None]

NARRATIVE: CASE EVENT DATE: 20151116
